FAERS Safety Report 25205384 (Version 5)
Quarter: 2025Q3

REPORT INFORMATION
  Report Type: Report from Study
  Country: MX (occurrence: MX)
  Receive Date: 20250417
  Receipt Date: 20250802
  Transmission Date: 20251020
  Serious: Yes (Other)
  Sender: ALEXION PHARMACEUTICALS
  Company Number: MX-AstraZeneca-CH-00738868A

PATIENT
  Age: 77 Year
  Sex: Female
  Weight: 47 kg

DRUGS (10)
  1. OSIMERTINIB [Suspect]
     Active Substance: OSIMERTINIB
     Indication: Lung neoplasm malignant
     Dosage: 80 MILLIGRAM, QD
     Dates: start: 20230501
  2. OMEPRAZOLE [Concomitant]
     Active Substance: OMEPRAZOLE
     Indication: Abdominal discomfort
     Dosage: 40 MILLIGRAM, QD
     Dates: start: 202001
  3. DIMETHICONE\PINAVERIUM BROMIDE [Concomitant]
     Active Substance: DIMETHICONE\PINAVERIUM BROMIDE
     Indication: Gastrointestinal disorder
     Dosage: 1 DOSAGE FORM, QD
     Dates: start: 202001
  4. CLONAZEPAM [Concomitant]
     Active Substance: CLONAZEPAM
     Indication: Anxiety
     Dosage: 2 MILLIGRAM, QD
     Dates: start: 202201
  5. TELMISARTAN [Concomitant]
     Active Substance: TELMISARTAN
     Indication: Hypertension
     Dosage: 1 DOSAGE FORM, QD
     Dates: start: 202201
  6. TELMISARTAN [Concomitant]
     Active Substance: TELMISARTAN
     Dosage: 0.5 DOSAGE FORM, QD
     Dates: start: 20241024
  7. ATORVASTATIN CALCIUM\EZETIMIBE [Concomitant]
     Active Substance: ATORVASTATIN CALCIUM\EZETIMIBE
     Indication: Hypertriglyceridaemia
     Route: 065
  8. LYMECYCLINE [Concomitant]
     Active Substance: LYMECYCLINE
     Indication: Acne
     Dosage: 150 MILLIGRAM, QD
     Dates: start: 202301
  9. Crostox [Concomitant]
     Dosage: 10 MILLIGRAM, QD
     Dates: start: 2022
  10. ASPIRIN [Concomitant]
     Active Substance: ASPIRIN
     Dosage: 81 MILLIGRAM, QD

REACTIONS (10)
  - Hypothyroidism [Recovering/Resolving]
  - Haematemesis [Recovered/Resolved]
  - Dizziness [Not Recovered/Not Resolved]
  - Melaena [Recovered/Resolved]
  - Gastrointestinal disorder [Recovered/Resolved]
  - Diarrhoea [Recovered/Resolved]
  - Hypotonia [Recovering/Resolving]
  - Abdominal pain upper [Recovered/Resolved]
  - Vomiting [Recovered/Resolved]
  - Discomfort [Not Recovered/Not Resolved]

NARRATIVE: CASE EVENT DATE: 20230501
